FAERS Safety Report 6124535-9 (Version None)
Quarter: 2009Q1

REPORT INFORMATION
  Report Type: 
  Country: None (occurrence: None)
  Receive Date: 20090317
  Receipt Date: 20090317
  Transmission Date: 20090719
  Serious: Yes (Death)
  Sender: FDA-Public Use
  Company Number: None

PATIENT
  Age: 55 Year
  Sex: Male
  Weight: 102 kg

DRUGS (6)
  1. GEMCITABINE 1000MG LILLY [Suspect]
     Indication: BREAST CANCER
     Dosage: 2280MG ONCE IV DRIP
     Route: 041
     Dates: start: 20090311, end: 20090311
  2. TRASTUZUMAB 440MG GENENTECH [Suspect]
     Indication: BREAST CANCER
     Dosage: 966MG ONCE IV DRIP
     Route: 041
     Dates: start: 20090311, end: 20090311
  3. DEXAMETHASONE TAB [Concomitant]
  4. ONDANSETRON [Concomitant]
  5. HEPARIN [Concomitant]
  6. SODIUM CHLORIDE [Concomitant]

REACTIONS (3)
  - ALANINE AMINOTRANSFERASE INCREASED [None]
  - ASPARTATE AMINOTRANSFERASE INCREASED [None]
  - BLOOD CREATININE INCREASED [None]
